FAERS Safety Report 14192793 (Version 1)
Quarter: 2017Q4

REPORT INFORMATION
  Report Type: Report from Study
  Country: NL (occurrence: NL)
  Receive Date: 20171116
  Receipt Date: 20171116
  Transmission Date: 20180321
  Serious: Yes (Other)
  Sender: FDA-Public Use
  Company Number: NL-BRISTOL-MYERS SQUIBB COMPANY-BMS-2017-102131

PATIENT
  Age: 53 Year
  Sex: Female
  Weight: 67 kg

DRUGS (3)
  1. PREDNISONE. [Concomitant]
     Active Substance: PREDNISONE
     Indication: PRODUCT USED FOR UNKNOWN INDICATION
     Route: 048
  2. METHOTREXATE. [Concomitant]
     Active Substance: METHOTREXATE
     Indication: PRODUCT USED FOR UNKNOWN INDICATION
     Route: 058
  3. ABATACEPT [Suspect]
     Active Substance: ABATACEPT
     Indication: PRODUCT USED FOR UNKNOWN INDICATION
     Dosage: 125 MG/ML, UNK
     Route: 042
     Dates: start: 20170622

REACTIONS (4)
  - Rheumatoid arthritis [Not Recovered/Not Resolved]
  - Impaired healing [Not Recovered/Not Resolved]
  - Fatigue [Recovering/Resolving]
  - Infusion site haematoma [Not Recovered/Not Resolved]

NARRATIVE: CASE EVENT DATE: 20170622
